FAERS Safety Report 8777070 (Version 2)
Quarter: 2012Q4

REPORT INFORMATION
  Report Type: 
  Country: US (occurrence: US)
  Receive Date: 20120911
  Receipt Date: 20121031
  Transmission Date: 20130627
  Serious: Yes (Other)
  Sender: FDA-Public Use
  Company Number: US-BRISTOL-MYERS SQUIBB COMPANY-16923377

PATIENT
  Age: 53 Year
  Sex: Male

DRUGS (6)
  1. ORENCIA [Suspect]
     Indication: RHEUMATOID ARTHRITIS
     Route: 042
     Dates: start: 20120308, end: 20120806
  2. PREDNISONE [Concomitant]
  3. CALCIUM [Concomitant]
  4. VITAMINS [Concomitant]
  5. HYDROCODONE [Concomitant]
  6. ARAVA [Concomitant]

REACTIONS (4)
  - Nausea [Recovered/Resolved]
  - Vomiting [Recovered/Resolved]
  - Eye haemorrhage [Unknown]
  - Upper respiratory tract infection [Unknown]
